FAERS Safety Report 7723695-3 (Version None)
Quarter: 2011Q3

REPORT INFORMATION
  Report Type: 
  Country: None (occurrence: None)
  Receive Date: 20110901
  Receipt Date: 20110822
  Transmission Date: 20111222
  Serious: Yes (Hospitalization)
  Sender: FDA-Public Use
  Company Number: FR-CELGENEUS-056-C5013-11062633

PATIENT
  Sex: Male
  Weight: 72 kg

DRUGS (7)
  1. LENALIDOMIDE [Suspect]
     Indication: PROSTATE CANCER
     Dosage: 25 MILLIGRAM
     Route: 048
     Dates: start: 20110606
  2. CORTICOSTEROIDS [Concomitant]
     Route: 065
  3. MORPHINE SULFATE [Concomitant]
     Route: 065
  4. DOCETAXEL [Suspect]
     Indication: PROSTATE CANCER
     Route: 065
     Dates: start: 20110606
  5. FORLAX [Concomitant]
     Route: 065
  6. PREDNISONE [Suspect]
     Indication: PROSTATE CANCER
     Dosage: 5 MILLIGRAM
     Route: 065
     Dates: start: 20110606
  7. SOPHIDONE [Concomitant]
     Route: 065

REACTIONS (9)
  - SEPTIC SHOCK [None]
  - METASTASES TO LIVER [None]
  - REFUSAL OF TREATMENT BY PATIENT [None]
  - METASTASES TO SPINE [None]
  - DIARRHOEA [None]
  - STAPHYLOCOCCAL SEPSIS [None]
  - CLOSTRIDIUM DIFFICILE COLITIS [None]
  - FEBRILE BONE MARROW APLASIA [None]
  - ORAL CANDIDIASIS [None]
